FAERS Safety Report 11234282 (Version 1)
Quarter: 2015Q3

REPORT INFORMATION
  Report Type: Spontaneous
  Country: US (occurrence: US)
  Receive Date: 20150702
  Receipt Date: 20150702
  Transmission Date: 20151125
  Serious: Yes (Other)
  Sender: FDA-Public Use
  Company Number: US-ENDO PHARMACEUTICALS INC.-2015-001606

PATIENT
  Age: 55 Year
  Sex: Female
  Weight: 80.36 kg

DRUGS (1)
  1. METHYLPREDNISOLONE TABLETS 4MG [Suspect]
     Active Substance: METHYLPREDNISOLONE
     Indication: SINUSITIS
     Dosage: TOOK 6 TABLETS 1ST DAY, 5 TABLETS 2ND DAY 3 TABLETS 3RD DAY (STOPPED AFTER THAT).
     Route: 048
     Dates: start: 20150615, end: 20150617

REACTIONS (8)
  - Vision blurred [Not Recovered/Not Resolved]
  - Abnormal sensation in eye [Not Recovered/Not Resolved]
  - Ocular hyperaemia [Recovered/Resolved]
  - Palpitations [Not Recovered/Not Resolved]
  - Vitreous floaters [Not Recovered/Not Resolved]
  - Eye pain [Not Recovered/Not Resolved]
  - Photopsia [Not Recovered/Not Resolved]
  - Headache [Not Recovered/Not Resolved]

NARRATIVE: CASE EVENT DATE: 20150617
